FAERS Safety Report 7631962-7 (Version None)
Quarter: 2011Q3

REPORT INFORMATION
  Report Type: 
  Country: None (occurrence: None)
  Receive Date: 20110725
  Receipt Date: 20110517
  Transmission Date: 20111222
  Serious: No
  Sender: FDA-Public Use
  Company Number: US-BRISTOL-MYERS SQUIBB COMPANY-15750425

PATIENT
  Age: 78 Year
  Sex: Female

DRUGS (4)
  1. CRESTOR [Concomitant]
  2. COUMADIN [Suspect]
     Dosage: FOR 5 YEARS
  3. VERELAN [Concomitant]
  4. NEXIUM [Concomitant]

REACTIONS (4)
  - FALL [None]
  - PAIN IN EXTREMITY [None]
  - OEDEMA PERIPHERAL [None]
  - HAEMORRHAGE [None]
